FAERS Safety Report 19401677 (Version 1)
Quarter: 2021Q2

REPORT INFORMATION
  Report Type: Spontaneous
  Country: US (occurrence: US)
  Receive Date: 20210611
  Receipt Date: 20210611
  Transmission Date: 20210717
  Serious: Yes (Other)
  Sender: FDA-Public Use
  Company Number: US-ROCHE-2844325

PATIENT
  Age: 64 Year
  Sex: Female
  Weight: 77.18 kg

DRUGS (2)
  1. ROZLYTREK [Suspect]
     Active Substance: ENTRECTINIB
     Indication: NON-SMALL CELL LUNG CANCER
     Route: 065
  2. ROZLYTREK [Suspect]
     Active Substance: ENTRECTINIB
     Indication: NEOPLASM

REACTIONS (6)
  - Memory impairment [Unknown]
  - Confusional state [Unknown]
  - Vocal cord paralysis [Unknown]
  - Weight increased [Unknown]
  - Thrombosis [Unknown]
  - Asthenia [Unknown]
